FAERS Safety Report 5409365-5 (Version None)
Quarter: 2007Q3

REPORT INFORMATION
  Report Type: 
  Country: None (occurrence: None)
  Receive Date: 20070809
  Receipt Date: 20070731
  Transmission Date: 20080115
  Serious: Yes (Other)
  Sender: FDA-Public Use
  Company Number: BR-JNJFOC-20070800774

PATIENT
  Age: 19 Year
  Sex: Male

DRUGS (1)
  1. ULTRACET [Suspect]
     Indication: DRUG USE FOR UNKNOWN INDICATION
     Dosage: 37.5/325 MG TABLETS. 3 TABLETS/DAY
     Route: 048

REACTIONS (1)
  - HYPERTENSION [None]
